FAERS Safety Report 15324493 (Version 1)
Quarter: 2018Q3

REPORT INFORMATION
  Report Type: Spontaneous
  Country: US (occurrence: US)
  Receive Date: 20180828
  Receipt Date: 20180828
  Transmission Date: 20181010
  Serious: Yes (Death, Hospitalization)
  Sender: FDA-Public Use
  Company Number: US-INSYS THERAPEUTICS, INC-INS201808-000263

PATIENT
  Age: 64 Year
  Sex: Female

DRUGS (3)
  1. SYNDROS [Suspect]
     Active Substance: DRONABINOL
     Indication: NAUSEA
  2. MORPHINE DRIP [Concomitant]
  3. SYNDROS [Suspect]
     Active Substance: DRONABINOL
     Indication: VOMITING

REACTIONS (1)
  - Neoplasm progression [Fatal]

NARRATIVE: CASE EVENT DATE: 20180705
